FAERS Safety Report 7291642-7 (Version None)
Quarter: 2011Q1

REPORT INFORMATION
  Report Type: 
  Country: None (occurrence: None)
  Receive Date: 20110202
  Receipt Date: 20110117
  Transmission Date: 20110831
  Serious: Yes (Death)
  Sender: FDA-Public Use
  Company Number: CN-ACCORD-008018

PATIENT
  Age: 65 Year
  Sex: Male

DRUGS (3)
  1. CORTICOSTERIOD (CORTICOSTERIOD) [Suspect]
  2. MYCOPHENOLATE MOFETIL [Suspect]
     Indication: IMMUNOSUPPRESSION
  3. TACROLIMUS [Suspect]
     Indication: IMMUNOSUPPRESSION

REACTIONS (2)
  - SMALL CELL LUNG CANCER METASTATIC [None]
  - METASTASES TO BONE [None]
